FAERS Safety Report 7474684-8 (Version None)
Quarter: 2011Q2

REPORT INFORMATION
  Report Type: 
  Country: None (occurrence: None)
  Receive Date: 20110505
  Receipt Date: 20110419
  Transmission Date: 20111010
  Serious: Yes (Other)
  Sender: FDA-Public Use
  Company Number: 2011040079

PATIENT
  Age: 47 Year
  Sex: Male

DRUGS (2)
  1. EFFEXOR [Concomitant]
     Indication: DEPRESSION
     Dosage: 300 MG (300 MG, 1 IN 1 D), 112.5 MG ( 112.5 MG, 1 IN 1 D)
     Dates: start: 20060101
  2. DIPENTUM [Suspect]
     Indication: CROHN'S DISEASE
     Dosage: 250 MG (250 MG, 1 IN 1 D)
     Dates: start: 19910101, end: 20100609

REACTIONS (7)
  - BLOOD ALKALINE PHOSPHATASE INCREASED [None]
  - ALANINE AMINOTRANSFERASE INCREASED [None]
  - GAMMA-GLUTAMYLTRANSFERASE INCREASED [None]
  - CHOLANGITIS SCLEROSING [None]
  - ASPARTATE AMINOTRANSFERASE INCREASED [None]
  - BLOOD LACTATE DEHYDROGENASE INCREASED [None]
  - DEPRESSION [None]
